FAERS Safety Report 9882325 (Version 2)
Quarter: 2014Q1

REPORT INFORMATION
  Report Type: Spontaneous
  Country: US (occurrence: US)
  Receive Date: 20140207
  Receipt Date: 20140311
  Transmission Date: 20141002
  Serious: Yes (Hospitalization)
  Sender: FDA-Public Use
  Company Number: US-GLAXOSMITHKLINE-A1059059A

PATIENT
  Age: 76 Year
  Sex: Female

DRUGS (5)
  1. ADVAIR [Suspect]
     Indication: ASTHMA
     Dosage: 1PUFF TWICE PER DAY
     Route: 055
  2. COMBIVENT [Concomitant]
  3. SINGULAIR [Concomitant]
  4. CLARITIN [Concomitant]
  5. DEFENDOL MULTIVITAMIN [Concomitant]

REACTIONS (9)
  - Adenocarcinoma [Unknown]
  - Visual impairment [Unknown]
  - Cardiac enzymes increased [Unknown]
  - Dyspnoea [Unknown]
  - Discomfort [Unknown]
  - Upper-airway cough syndrome [Unknown]
  - Dysphagia [Unknown]
  - Dacryostenosis acquired [Unknown]
  - Asthma [Unknown]
